FAERS Safety Report 10177081 (Version 2)
Quarter: 2014Q2

REPORT INFORMATION
  Report Type: Spontaneous
  Country: AR (occurrence: AR)
  Receive Date: 20140516
  Receipt Date: 20140527
  Transmission Date: 20141212
  Serious: Yes (Other)
  Sender: FDA-Public Use
  Company Number: AR-JNJFOC-20140506952

PATIENT
  Sex: Male

DRUGS (12)
  1. ABIRATERONE ACETATE [Suspect]
     Indication: PROSTATE CANCER METASTATIC
     Route: 048
  2. DULOXETINE [Concomitant]
     Route: 065
  3. CLOPIDOGREL [Concomitant]
     Route: 065
  4. LEUPRORELIN [Concomitant]
     Route: 065
  5. PREDNISONE [Concomitant]
     Route: 065
  6. MEGESTROL [Concomitant]
     Route: 065
  7. DENOSUMAB [Concomitant]
     Route: 065
  8. MORPHINE [Concomitant]
     Route: 065
  9. PARACETAMOL W/HYDROCODONE BITARTRATE [Concomitant]
     Route: 065
  10. MACROGOL [Concomitant]
     Route: 065
  11. ERGOCALCIFEROL [Concomitant]
     Route: 065
  12. METOPROLOL [Concomitant]
     Route: 065

REACTIONS (1)
  - Thrombocytopenia [Recovered/Resolved]
